FAERS Safety Report 15005366 (Version 1)
Quarter: 2018Q2

REPORT INFORMATION
  Report Type: Spontaneous
  Country: AU (occurrence: AU)
  Receive Date: 20180613
  Receipt Date: 20180613
  Transmission Date: 20180711
  Serious: Yes (Other)
  Sender: FDA-Public Use
  Company Number: AU-LPDUSPRD-20180988

PATIENT
  Age: 25 Year
  Sex: Female

DRUGS (1)
  1. FERINJECT [Suspect]
     Active Substance: FERRIC CARBOXYMALTOSE
     Dosage: UNKNOWN
     Route: 041

REACTIONS (8)
  - Tachypnoea [Recovered/Resolved]
  - Urticaria [Recovered/Resolved]
  - Product quality issue [Recovered/Resolved]
  - Hair disorder [Recovered/Resolved]
  - Presyncope [Recovered/Resolved]
  - Infusion site erythema [Recovered/Resolved]
  - Fatigue [Recovered/Resolved]
  - Rash [Recovered/Resolved]

NARRATIVE: CASE EVENT DATE: 20180217
